FAERS Safety Report 7765909-X (Version None)
Quarter: 2011Q3

REPORT INFORMATION
  Report Type: 
  Country: None (occurrence: None)
  Receive Date: 20110906
  Receipt Date: 20110715
  Transmission Date: 20111222
  Serious: No
  Sender: FDA-Public Use
  Company Number: 201107036

PATIENT
  Age: 62 Year
  Sex: Male
  Weight: 88.4514 kg

DRUGS (2)
  1. XIAFLEX [Suspect]
     Indication: DUPUYTREN'S CONTRACTURE
     Dosage: 1 IN 1 D,INTRALESIONAL
     Route: 026
     Dates: start: 20101001, end: 20101001
  2. MINOCYCLINE HCL [Concomitant]

REACTIONS (1)
  - DYSKINESIA [None]
